FAERS Safety Report 15703079 (Version 1)
Quarter: 2018Q4

REPORT INFORMATION
  Report Type: Spontaneous
  Country: US (occurrence: US)
  Receive Date: 20181208
  Receipt Date: 20181208
  Transmission Date: 20190205
  Serious: No
  Sender: FDA-Public Use
  Company Number: None

PATIENT
  Age: 50 Year
  Sex: Female
  Weight: 94.5 kg

DRUGS (7)
  1. AIMOVIG [Suspect]
     Active Substance: ERENUMAB-AOOE
     Indication: MIGRAINE
     Dosage: 1 INJECTION(S);ONCE MONTHLY INJECTED INTO BELLY?
     Route: 058
     Dates: start: 20180809, end: 20181208
  2. PROPRANOLOL [Concomitant]
     Active Substance: PROPRANOLOL HYDROCHLORIDE
  3. SELENIUM [Concomitant]
     Active Substance: SELENIUM
  4. MAGNESIUM [Concomitant]
     Active Substance: MAGNESIUM
  5. VITAMIN E [Concomitant]
     Active Substance: .ALPHA.-TOCOPHEROL
  6. RANITIDINE. [Concomitant]
     Active Substance: RANITIDINE
  7. ZINC. [Concomitant]
     Active Substance: ZINC

REACTIONS (7)
  - Presyncope [None]
  - Vision blurred [None]
  - Asthenia [None]
  - Dizziness [None]
  - Lethargy [None]
  - Peripheral swelling [None]
  - Constipation [None]

NARRATIVE: CASE EVENT DATE: 20181109
